FAERS Safety Report 8845008 (Version 1)
Quarter: 2012Q4

REPORT INFORMATION
  Report Type: 
  Country: US (occurrence: US)
  Receive Date: 20121017
  Receipt Date: 20121017
  Transmission Date: 20130627
  Serious: Yes (Death, Life-Threatening, Hospitalization, Other)
  Sender: FDA-Public Use
  Company Number: US-PFIZER INC-US-WYE-H12834510

PATIENT
  Age: 79 Year
  Sex: Female
  Weight: 49.9 kg

DRUGS (9)
  1. PROTONIX [Suspect]
     Indication: GASTROOESOPHAGEAL REFLUX DISEASE
     Dosage: 40 mg, UNK
     Route: 042
     Dates: start: 20050702, end: 20050706
  2. PROTONIX [Suspect]
     Indication: NAUSEA
     Dosage: 40 mg, single
     Route: 042
     Dates: start: 20050811, end: 20050811
  3. PROTONIX [Suspect]
     Indication: VOMITING
  4. PROTONIX [Suspect]
     Indication: GASTROOESOPHAGEAL REFLUX DISEASE
     Dosage: 40 mg, 2x/day
     Route: 048
     Dates: start: 20050309, end: 200503
  5. PROTONIX [Suspect]
     Indication: NAUSEA
  6. PROTONIX [Suspect]
     Indication: VOMITING
  7. PREDNISONE [Concomitant]
     Dosage: UNK
     Route: 065
  8. VITAMINS [Concomitant]
     Dosage: UNK
     Route: 048
  9. VITAMIN C [Concomitant]
     Dosage: 1000 mg, daily

REACTIONS (26)
  - Stevens-Johnson syndrome [Fatal]
  - Respiratory failure [Fatal]
  - Hypersensitivity [Fatal]
  - Pancreatic insufficiency [Fatal]
  - Toxic epidermal necrolysis [Fatal]
  - Sepsis [Fatal]
  - Erythema multiforme [Fatal]
  - Pancreatitis [Fatal]
  - Toxicity to various agents [Fatal]
  - Respiratory arrest [Not Recovered/Not Resolved]
  - Shock [Unknown]
  - Circulatory collapse [Unknown]
  - Diabetes mellitus [Unknown]
  - Cardiac failure congestive [Unknown]
  - Cholecystitis acute [Unknown]
  - Coma [Not Recovered/Not Resolved]
  - Oedema [Unknown]
  - Liver injury [Not Recovered/Not Resolved]
  - Cholangitis [Unknown]
  - Depression [Unknown]
  - Colitis [Unknown]
  - Renal disorder [Unknown]
  - Cystitis [Unknown]
  - Rash pruritic [Recovered/Resolved]
  - Rash erythematous [Recovered/Resolved]
  - Influenza like illness [Unknown]
